FAERS Safety Report 14636522 (Version 3)
Quarter: 2018Q3

REPORT INFORMATION
  Report Type: Spontaneous
  Country: US (occurrence: US)
  Receive Date: 20180314
  Receipt Date: 20180905
  Transmission Date: 20181010
  Serious: Yes (Hospitalization, Other)
  Sender: FDA-Public Use
  Company Number: US-DSJP-DSU-2017-139452

PATIENT

DRUGS (3)
  1. BENICAR [Suspect]
     Active Substance: OLMESARTAN MEDOXOMIL
     Indication: PRODUCT USED FOR UNKNOWN INDICATION
     Dosage: 20 MG, UNK
     Dates: start: 20091028, end: 20141027
  2. BENICAR HCT [Suspect]
     Active Substance: HYDROCHLOROTHIAZIDE\OLMESARTAN MEDOXOMIL
     Indication: PRODUCT USED FOR UNKNOWN INDICATION
     Dosage: 40/25 MG, UNK
     Dates: start: 20091028, end: 20141027
  3. BENICAR [Suspect]
     Active Substance: OLMESARTAN MEDOXOMIL
     Dosage: 40 MG, QD
     Dates: start: 20141027

REACTIONS (11)
  - Large intestine polyp [Unknown]
  - Dyspepsia [Unknown]
  - Oesophageal ulcer [Unknown]
  - Intestinal ischaemia [Unknown]
  - Diverticulum [Unknown]
  - Diverticulitis [Not Recovered/Not Resolved]
  - Inguinal hernia [Recovered/Resolved]
  - Gastritis erosive [Unknown]
  - Sprue-like enteropathy [Recovered/Resolved]
  - Acute kidney injury [Unknown]
  - Hypotension [Unknown]

NARRATIVE: CASE EVENT DATE: 20120416
